FAERS Safety Report 6971349-3 (Version None)
Quarter: 2010Q3

REPORT INFORMATION
  Report Type: 
  Country: None (occurrence: None)
  Receive Date: 20100908
  Receipt Date: 20100906
  Transmission Date: 20110219
  Serious: Yes (Hospitalization)
  Sender: FDA-Public Use
  Company Number: PHHY2010ES58859

PATIENT
  Age: 54 Year
  Sex: Female

DRUGS (6)
  1. LAMISIL [Suspect]
     Indication: ONYCHOMYCOSIS
     Dosage: 250 MG, QD
     Route: 048
     Dates: start: 20100608, end: 20100624
  2. OMEPRAZOLE [Concomitant]
     Dosage: 20 MG DAILY
     Route: 048
  3. SULPHASALAZINE [Concomitant]
     Dosage: 3G DAILY
     Route: 048
  4. DACORTIN [Concomitant]
     Dosage: 7.5 MG DAILY
     Route: 048
  5. METOJECT [Concomitant]
     Dosage: 25 MG, QW
     Route: 058
  6. NATECAL D [Concomitant]
     Dosage: 1.5 G DAILY
     Route: 048

REACTIONS (1)
  - HEPATITIS CHOLESTATIC [None]
